FAERS Safety Report 5236323-6 (Version None)
Quarter: 2007Q1

REPORT INFORMATION
  Report Type: 
  Country: None (occurrence: None)
  Receive Date: 20061208
  Receipt Date: 20050825
  Transmission Date: 20070707
  Serious: Yes (Other)
  Sender: FDA-Public Use
  Company Number: 2005UW10606

PATIENT
  Age: 52 Year
  Sex: Female
  Weight: 81.646 kg

DRUGS (4)
  1. CRESTOR [Suspect]
     Indication: BLOOD CHOLESTEROL INCREASED
     Dosage: 10 MG DAILY PO
     Route: 048
     Dates: start: 20050713, end: 20050718
  2. CRESTOR [Suspect]
     Indication: BLOOD TRIGLYCERIDES INCREASED
     Dosage: 10 MG DAILY PO
     Route: 048
     Dates: start: 20050713, end: 20050718
  3. DIOVAN [Suspect]
     Dosage: 160 MG
     Dates: start: 20050713
  4. VITAMIN CAP [Concomitant]

REACTIONS (7)
  - DEPRESSION [None]
  - EMOTIONAL DISORDER [None]
  - INSOMNIA [None]
  - MENTAL DISORDER [None]
  - MOOD SWINGS [None]
  - NIGHT SWEATS [None]
  - PARAESTHESIA [None]
